FAERS Safety Report 6781041-6 (Version None)
Quarter: 2010Q2

REPORT INFORMATION
  Report Type: 
  Country: None (occurrence: None)
  Receive Date: 20100621
  Receipt Date: 20100616
  Transmission Date: 20101027
  Serious: Yes (Life-Threatening)
  Sender: FDA-Public Use
  Company Number: FR-ASTRAZENECA-2006CG01821

PATIENT
  Age: 17 Year
  Sex: Female
  Weight: 51 kg

DRUGS (18)
  1. PROPOFOL [Suspect]
     Indication: CONVULSION
     Dosage: DURING THE FIRST 4 HOUR 100 MG BOLUS PROPOFOL WAS PROGRESSIVELY INCREASED UP TO 400 MG
     Route: 042
  2. PROPOFOL [Suspect]
     Indication: SEDATION
     Dosage: DURING THE FIRST 4 HOUR 100 MG BOLUS PROPOFOL WAS PROGRESSIVELY INCREASED UP TO 400 MG
     Route: 042
  3. PROPOFOL [Suspect]
     Route: 042
     Dates: start: 20061024
  4. PROPOFOL [Suspect]
     Route: 042
     Dates: start: 20061024
  5. PROPOFOL [Suspect]
     Dosage: PROPOFOL DOSE WAS REDUCED PROGRESSIVELY
     Route: 042
  6. PROPOFOL [Suspect]
     Dosage: PROPOFOL DOSE WAS REDUCED PROGRESSIVELY
     Route: 042
  7. PROPOFOL [Suspect]
     Route: 042
  8. PROPOFOL [Suspect]
     Route: 042
  9. PROPOFOL [Suspect]
     Route: 042
     Dates: end: 20061027
  10. PROPOFOL [Suspect]
     Route: 042
     Dates: end: 20061027
  11. FENTANYL [Concomitant]
     Indication: ANAESTHESIA
  12. MIDAZOLAM HCL [Concomitant]
     Indication: ANAESTHESIA
     Route: 042
     Dates: start: 20061024
  13. MIDAZOLAM HCL [Concomitant]
     Route: 042
  14. CEFTRIAXONE [Concomitant]
     Indication: MENINGITIS BACTERIAL
  15. RIFAMPICIN [Concomitant]
     Indication: MENINGITIS BACTERIAL
  16. ACYCLOVIR [Concomitant]
     Indication: MENINGITIS BACTERIAL
  17. CARBAMAZEPINE [Concomitant]
     Route: 048
  18. ACETAMINOPHEN [Concomitant]

REACTIONS (2)
  - OFF LABEL USE [None]
  - PROPOFOL INFUSION SYNDROME [None]
